FAERS Safety Report 5335337-5 (Version None)
Quarter: 2007Q2

REPORT INFORMATION
  Report Type: 
  Country: None (occurrence: None)
  Receive Date: 20070525
  Receipt Date: 20070514
  Transmission Date: 20071010
  Serious: Yes (Hospitalization)
  Sender: FDA-Public Use
  Company Number: JP-PFIZER INC-2007039363

PATIENT
  Age: 75 Year
  Sex: Male

DRUGS (13)
  1. CABASER [Suspect]
     Indication: PARKINSON'S DISEASE
     Dates: start: 20001011, end: 20050506
  2. MADOPAR [Concomitant]
  3. ARTANE [Concomitant]
  4. PARLODEL [Concomitant]
  5. MAGNESIUM OXIDE [Concomitant]
  6. EC DOPARL [Concomitant]
  7. PURSENNID [Concomitant]
  8. SELEGILINE HYDROCHLORIDE [Concomitant]
  9. ACENALIN [Concomitant]
  10. ALL OTHER THERAPEUTIC PRODUCTS [Concomitant]
  11. GASTER [Concomitant]
  12. SYMMETREL [Concomitant]
  13. EXCEGRAN [Concomitant]

REACTIONS (1)
  - AORTIC VALVE INCOMPETENCE [None]
